FAERS Safety Report 9633800 (Version 1)
Quarter: 2013Q4

REPORT INFORMATION
  Report Type: Spontaneous
  Country: US (occurrence: US)
  Receive Date: 20131021
  Receipt Date: 20131021
  Transmission Date: 20140711
  Serious: No
  Sender: FDA-Public Use
  Company Number: US-PFIZER INC-2013296687

PATIENT
  Age: 35 Year
  Sex: Male
  Weight: 87.98 kg

DRUGS (2)
  1. SOMAVERT [Suspect]
     Indication: ACROMEGALY
     Dosage: 30 MG, DAILY
     Route: 058
     Dates: start: 20100922
  2. SOMAVERT [Suspect]
     Indication: GIGANTISM

REACTIONS (1)
  - Injection site bruising [Recovered/Resolved]
